FAERS Safety Report 12305408 (Version 1)
Quarter: 2016Q2

REPORT INFORMATION
  Report Type: Spontaneous
  Country: US (occurrence: None)
  Receive Date: 20160425
  Receipt Date: 20160425
  Transmission Date: 20160815
  Serious: Yes (Hospitalization)
  Sender: FDA-Public Use
  Company Number: None

PATIENT
  Age: 58 Year
  Sex: Male

DRUGS (1)
  1. COTELLIC [Suspect]
     Active Substance: COBIMETINIB
     Indication: SKIN CANCER
     Dosage: 3 TABS DAILY X 21 PO
     Route: 048
     Dates: start: 20160409, end: 20160418

REACTIONS (4)
  - Cardiac function test abnormal [None]
  - Abasia [None]
  - Rash generalised [None]
  - Anger [None]

NARRATIVE: CASE EVENT DATE: 20160418
